FAERS Safety Report 9694889 (Version 1)
Quarter: 2013Q4

REPORT INFORMATION
  Report Type: Spontaneous
  Country: US (occurrence: US)
  Receive Date: 20131119
  Receipt Date: 20131119
  Transmission Date: 20140711
  Serious: No
  Sender: FDA-Public Use
  Company Number: US-PFIZER INC-2013321867

PATIENT
  Age: 53 Year
  Sex: Female

DRUGS (1)
  1. REVATIO [Suspect]
     Indication: RAYNAUD^S PHENOMENON
     Dosage: 20 MG, UNK
     Dates: start: 20131101

REACTIONS (2)
  - Off label use [Unknown]
  - Raynaud^s phenomenon [Unknown]
